FAERS Safety Report 15283189 (Version 1)
Quarter: 2018Q3

REPORT INFORMATION
  Report Type: Report from Study
  Country: US (occurrence: US)
  Receive Date: 20180816
  Receipt Date: 20180816
  Transmission Date: 20181010
  Serious: Yes (Other)
  Sender: FDA-Public Use
  Company Number: US-ROCHE-2168319

PATIENT
  Sex: Female

DRUGS (3)
  1. OCREVUS [Suspect]
     Active Substance: OCRELIZUMAB
     Dosage: SUPPOSED TO RECEIVED OCREVUS ON 30?JUL?2018 ;ONGOING: UNKNOWN
     Route: 065
  2. OCREVUS [Suspect]
     Active Substance: OCRELIZUMAB
     Indication: RELAPSING MULTIPLE SCLEROSIS
     Dosage: 1ST OCREVUS SPLIT DOSE ;ONGOING: NO
     Route: 065
     Dates: start: 20180118, end: 20180118
  3. OCREVUS [Suspect]
     Active Substance: OCRELIZUMAB
     Dosage: 2ND OCREVUS SPLIT DOSE ;ONGOING: NO
     Route: 065
     Dates: start: 20180201, end: 20180201

REACTIONS (4)
  - Urinary tract infection [Unknown]
  - Dizziness [Unknown]
  - Respiratory tract infection [Unknown]
  - Multiple sclerosis relapse [Unknown]
